FAERS Safety Report 12877009 (Version 2)
Quarter: 2016Q4

REPORT INFORMATION
  Report Type: Spontaneous
  Country: TW (occurrence: TW)
  Receive Date: 20161024
  Receipt Date: 20161031
  Transmission Date: 20170207
  Serious: Yes (Other)
  Sender: FDA-Public Use
  Company Number: TW-PFIZER INC-2016480466

PATIENT
  Age: 3 Year
  Sex: Male

DRUGS (2)
  1. BENEFIX [Suspect]
     Active Substance: COAGULATION FACTOR IX RECOMBINANT HUMAN\ISOPROPYL ALCOHOL
     Indication: HAEMOPHILIA
     Dosage: UNK, 2X/WEEK PROPHYLAXIS USE
     Route: 042
     Dates: start: 2014
  2. BENEFIX [Suspect]
     Active Substance: COAGULATION FACTOR IX RECOMBINANT HUMAN\ISOPROPYL ALCOHOL
     Dosage: 500 IU, 2X/WEEK PROPHYLAXIS USE
     Route: 042

REACTIONS (6)
  - Nasal injury [Recovering/Resolving]
  - Product use issue [Unknown]
  - Epistaxis [Recovering/Resolving]
  - Fall [Recovering/Resolving]
  - Gingival bleeding [Recovering/Resolving]
  - Tooth injury [Recovered/Resolved]

NARRATIVE: CASE EVENT DATE: 2014
